FAERS Safety Report 17797489 (Version 4)
Quarter: 2020Q3

REPORT INFORMATION
  Report Type: Spontaneous
  Country: US (occurrence: US)
  Receive Date: 20200518
  Receipt Date: 20200716
  Transmission Date: 20201102
  Serious: Yes (Death, Life-Threatening, Hospitalization, Disabling, Other)
  Sender: FDA-Public Use
  Company Number: US-SA-2020SA123648

PATIENT

DRUGS (6)
  1. OXALIPLATIN. [Concomitant]
     Active Substance: OXALIPLATIN
     Indication: CHEMOTHERAPY
     Dosage: UNK
     Dates: start: 20200406
  2. TAXOTERE [Suspect]
     Active Substance: DOCETAXEL
     Indication: CHEMOTHERAPY
     Dosage: UNK
     Dates: start: 20200406, end: 20200407
  3. 5 FLUROURACIL [Concomitant]
     Active Substance: FLUOROURACIL
     Indication: CHEMOTHERAPY
     Dosage: UNK
     Dates: start: 20200406
  4. HUMULIN 70/30 [Concomitant]
     Active Substance: INSULIN HUMAN
     Indication: TYPE 2 DIABETES MELLITUS
     Dosage: UNK
     Dates: start: 2020
  5. LOSARTAN. [Concomitant]
     Active Substance: LOSARTAN
     Indication: HYPERTENSION
     Dosage: UNK
  6. FOLINIC ACID [Concomitant]
     Active Substance: LEUCOVORIN
     Indication: CHEMOTHERAPY
     Dosage: UNK
     Dates: start: 20200406

REACTIONS (9)
  - Fall [Unknown]
  - Liver injury [Not Recovered/Not Resolved]
  - Cerebrovascular accident [Unknown]
  - General physical health deterioration [Unknown]
  - Peripheral swelling [Recovering/Resolving]
  - Prostate cancer [Fatal]
  - Fatigue [Unknown]
  - Fluid retention [Recovering/Resolving]
  - Abdominal distension [Recovering/Resolving]

NARRATIVE: CASE EVENT DATE: 20200409
